FAERS Safety Report 5142887-3 (Version None)
Quarter: 2006Q4

REPORT INFORMATION
  Report Type: 
  Country: None (occurrence: None)
  Receive Date: 20061030
  Receipt Date: 20061013
  Transmission Date: 20070319
  Serious: Yes (Other)
  Sender: FDA-Public Use
  Company Number: S06-UKI-04362-01

PATIENT
  Age: 58 Year
  Sex: Male

DRUGS (5)
  1. CITALOPRAM HYDROBROMIDE [Suspect]
     Indication: DEPRESSION
     Dosage: 20 MG PO
     Route: 048
     Dates: start: 20060801
  2. WARFARIN SODIUM [Concomitant]
  3. DIAZEPAM [Concomitant]
  4. VITAMIN CAP [Concomitant]
  5. LITHIUM CARBONATE [Concomitant]

REACTIONS (1)
  - BLOOD GLUCOSE INCREASED [None]
